FAERS Safety Report 4754751-X (Version None)
Quarter: 2005Q3

REPORT INFORMATION
  Report Type: 
  Country: None (occurrence: None)
  Receive Date: 20050826
  Receipt Date: 20030618
  Transmission Date: 20060218
  Serious: Yes (Death)
  Sender: FDA-Public Use
  Company Number: USA-2003-0008385

PATIENT
  Age: 41 Year
  Sex: Female

DRUGS (9)
  1. OXYCODONE HCL [Suspect]
  2. HYDROCODONE BITARTRATE [Suspect]
  3. ACETAMINOPHEN [Suspect]
  4. METHOCARBAMOL [Suspect]
  5. IBUPROFEN [Suspect]
  6. GUAIFENESIN (GUAIFENESIN) [Suspect]
  7. TRAZODONE HCL [Suspect]
  8. RANITIDINE [Suspect]
  9. NICOTINE [Suspect]

REACTIONS (2)
  - ACCIDENTAL OVERDOSE [None]
  - MULTIPLE DRUG OVERDOSE [None]
